FAERS Safety Report 6307498-2 (Version None)
Quarter: 2009Q3

REPORT INFORMATION
  Report Type: 
  Country: None (occurrence: None)
  Receive Date: 20090813
  Receipt Date: 20090317
  Transmission Date: 20100115
  Serious: Yes (Other)
  Sender: FDA-Public Use
  Company Number: FR-JNJFOC-20081006853

PATIENT
  Sex: Male
  Weight: 29.48 kg

DRUGS (4)
  1. CONCERTA [Suspect]
     Indication: DRUG USE FOR UNKNOWN INDICATION
     Route: 048
  2. RITALIN [Suspect]
     Indication: DRUG USE FOR UNKNOWN INDICATION
     Dosage: 6 TO 10 TABLETS A DAY
     Route: 048
  3. SERESTA [Concomitant]
     Route: 065
  4. NOCTAMIDE [Concomitant]
     Route: 065

REACTIONS (3)
  - DEPENDENCE [None]
  - INTENTIONAL DRUG MISUSE [None]
  - WITHDRAWAL SYNDROME [None]
